FAERS Safety Report 6360286-3 (Version None)
Quarter: 2009Q3

REPORT INFORMATION
  Report Type: 
  Country: None (occurrence: None)
  Receive Date: 20090917
  Receipt Date: 20090907
  Transmission Date: 20100115
  Serious: Yes (Hospitalization, Other)
  Sender: FDA-Public Use
  Company Number: TT-PFIZER INC-2009268096

PATIENT

DRUGS (6)
  1. SERTRALINE HCL [Suspect]
     Indication: BIPOLAR II DISORDER
     Dosage: UNK
  2. PRAMIPEXOLE [Suspect]
     Indication: BIPOLAR II DISORDER
     Dosage: 75 MG, 3X/DAY
  3. LITHIUM CARBONATE [Suspect]
     Indication: BIPOLAR II DISORDER
     Dosage: UNK
  4. LAMOTRIGINE [Suspect]
     Dosage: UNK
  5. CLOMIPRAMINE [Suspect]
     Indication: BIPOLAR II DISORDER
     Dosage: UNK
  6. QUETIAPINE [Suspect]
     Indication: BIPOLAR II DISORDER
     Dosage: UNK

REACTIONS (6)
  - DRUG INEFFECTIVE [None]
  - ENERGY INCREASED [None]
  - MANIA [None]
  - NAUSEA [None]
  - SUICIDAL IDEATION [None]
  - VOMITING [None]
